FAERS Safety Report 7155919-8 (Version None)
Quarter: 2010Q4

REPORT INFORMATION
  Report Type: 
  Country: None (occurrence: None)
  Receive Date: 20101214
  Receipt Date: 20101208
  Transmission Date: 20110411
  Serious: Yes (Hospitalization)
  Sender: FDA-Public Use
  Company Number: AU-GENZYME-CAMP-1000258

PATIENT
  Sex: Female

DRUGS (16)
  1. ALEMTUZUMAB [Suspect]
     Indication: MULTIPLE SCLEROSIS
     Dosage: 24 MG, QD
     Route: 042
     Dates: start: 20090420, end: 20090421
  2. ALEMTUZUMAB [Suspect]
     Dosage: 10 MG, QD
     Route: 042
     Dates: start: 20100503, end: 20100503
  3. METHYLPREDNISOLONE [Concomitant]
     Indication: PROPHYLAXIS
     Dosage: 1.0 G, QD
     Dates: start: 20090420, end: 20090421
  4. ZOLOFT [Concomitant]
     Indication: DEPRESSION
     Dosage: 50 MG, QD
     Route: 048
     Dates: start: 20080701
  5. COVERSYL [Concomitant]
     Indication: HYPERTENSION
     Dosage: 2.5 MG, QD
     Route: 048
     Dates: start: 20070301
  6. ONDENSETRONE [Concomitant]
     Indication: PROPHYLAXIS
     Dosage: 8 MG, QD
     Route: 042
     Dates: start: 20090420, end: 20090421
  7. RANITIDINE [Concomitant]
     Indication: PROPHYLAXIS
     Dosage: 300 MG, BID
     Route: 048
     Dates: start: 20090419, end: 20090429
  8. VALTREX [Concomitant]
     Indication: PROPHYLAXIS
     Dosage: 500 MG, BID
     Route: 048
     Dates: start: 20090423
  9. PANADOL [Concomitant]
     Indication: PROPHYLAXIS
     Dosage: 1000 MG, PRN
     Route: 048
     Dates: start: 20090420
  10. PANADOL [Concomitant]
     Indication: ABDOMINAL PAIN UPPER
  11. PHENERGAN [Concomitant]
     Indication: PROPHYLAXIS
     Dosage: 10 MG, QD
     Route: 048
     Dates: start: 20090419, end: 20090420
  12. PHENERGAN [Concomitant]
     Dosage: 12.5 MG, QD
     Route: 042
     Dates: start: 20090420, end: 20090421
  13. ZYRTEC [Concomitant]
     Indication: PROPHYLAXIS
     Dosage: 10 MG, QD
     Route: 048
     Dates: start: 20090423, end: 20090429
  14. TEMAZEPAM [Concomitant]
     Indication: INSOMNIA
     Dosage: 20 MG, QD
     Route: 048
     Dates: start: 20090422, end: 20090423
  15. ABBICILLIN VT FILM TABS [Concomitant]
     Indication: INFECTION PROPHYLAXIS
     Dosage: 500 MG, QID
     Route: 048
     Dates: start: 20090428, end: 20090508
  16. VENTOLIN [Concomitant]
     Indication: ASTHMA
     Dosage: UNK
     Route: 055
     Dates: start: 19850101

REACTIONS (1)
  - GASTRITIS [None]
